FAERS Safety Report 9657882 (Version 1)
Quarter: 2013Q4

REPORT INFORMATION
  Report Type: Spontaneous
  Country: US (occurrence: None)
  Receive Date: 20131029
  Receipt Date: 20131029
  Transmission Date: 20140711
  Serious: Yes (Other)
  Sender: FDA-Public Use
  Company Number: GB-DEXPHARM-20130813

PATIENT
  Age: 70 Year
  Sex: Male

DRUGS (3)
  1. RAMIPRIL [Suspect]
     Indication: HYPERTENSION
     Dosage: 1.25 MG MILLIGRAM(S) SEP, DOSAGES /INTERVAL: 1 IN 1 DAYS ORAL
     Route: 048
     Dates: start: 20120803, end: 20130628
  2. ASPIRIN [Concomitant]
  3. BISOPROLOL [Concomitant]

REACTIONS (4)
  - Erythema [None]
  - Pain [None]
  - Skin exfoliation [None]
  - Swelling [None]
